FAERS Safety Report 7128379-0 (Version None)
Quarter: 2010Q4

REPORT INFORMATION
  Report Type: 
  Country: None (occurrence: None)
  Receive Date: 20101130
  Receipt Date: 20101117
  Transmission Date: 20110411
  Serious: Yes (Hospitalization, Other)
  Sender: FDA-Public Use
  Company Number: JP-NOVOPROD-318222

PATIENT
  Age: 78 Year
  Sex: Male

DRUGS (1)
  1. PENFILL 30R CHU [Suspect]
     Indication: TYPE 2 DIABETES MELLITUS
     Dosage: NOT REPORTED
     Route: 065
     Dates: start: 20020101

REACTIONS (6)
  - ANTI-INSULIN ANTIBODY INCREASED [None]
  - CONDITION AGGRAVATED [None]
  - DIABETIC KETOACIDOTIC HYPERGLYCAEMIC COMA [None]
  - HYPERGLYCAEMIA [None]
  - HYPOGLYCAEMIA [None]
  - PSYCHIATRIC SYMPTOM [None]
